FAERS Safety Report 12139841 (Version 4)
Quarter: 2016Q3

REPORT INFORMATION
  Report Type: Spontaneous
  Country: JP (occurrence: JP)
  Receive Date: 20160303
  Receipt Date: 20160712
  Transmission Date: 20161109
  Serious: Yes (Death, Life-Threatening, Hospitalization, Other)
  Sender: FDA-Public Use
  Company Number: JP-009507513-1602JPN003007

PATIENT
  Age: 83 Year
  Sex: Female
  Weight: 43 kg

DRUGS (6)
  1. VOLTAREN [Concomitant]
     Active Substance: DICLOFENAC SODIUM
     Dosage: DAILY DOSAGE UNKNOWN; FORMULATION REPORTED AS XXX
     Route: 065
  2. CALONAL [Concomitant]
     Active Substance: ACETAMINOPHEN
     Dosage: DAILY DOSAGE UNKNOWN; FORMULATION REPORTED AS XXX
     Route: 065
  3. FINIBAX [Concomitant]
     Active Substance: DORIPENEM MONOHYDRATE
     Dosage: DAILY DOSAGE UNKNOWN
     Route: 051
  4. MEROPEN [Concomitant]
     Active Substance: MEROPENEM
     Dosage: DAILY DOSAGE UNKNOWN; ONCE EVERY 2 DAYS
     Route: 041
  5. OLMETEC [Concomitant]
     Active Substance: OLMESARTAN MEDOXOMIL
     Dosage: DAILY DOSAGE UNKNOWN; PER ORAL FORMULATION (POR)
     Route: 048
  6. CUBICIN [Suspect]
     Active Substance: DAPTOMYCIN
     Indication: ARTHRITIS BACTERIAL
     Dosage: 262.5 MG, QOD, ONCE EVERY OTHER DAY (3/WEEK)
     Route: 041
     Dates: start: 20151217, end: 20160112

REACTIONS (4)
  - Nephrogenic anaemia [Fatal]
  - Chronic kidney disease [Fatal]
  - Eosinophil count increased [Recovering/Resolving]
  - Eosinophilic pneumonia [Recovering/Resolving]

NARRATIVE: CASE EVENT DATE: 20160105
